FAERS Safety Report 9540279 (Version 2)
Quarter: 2013Q3

REPORT INFORMATION
  Report Type: Report from Study
  Country: US (occurrence: US)
  Receive Date: 20130920
  Receipt Date: 20130920
  Transmission Date: 20140515
  Serious: Yes (Hospitalization, Other)
  Sender: FDA-Public Use
  Company Number: PHHO2010US17518

PATIENT
  Age: 12 Year
  Sex: Female
  Weight: 56.2 kg

DRUGS (1)
  1. ICL670A [Suspect]
     Indication: IRON OVERLOAD
     Dates: start: 20070226

REACTIONS (7)
  - Abdominal pain [Recovered/Resolved]
  - Pain [Recovered/Resolved]
  - Pain in extremity [Recovered/Resolved]
  - Back pain [Recovered/Resolved]
  - Pyrexia [Recovered/Resolved]
  - Headache [Recovered/Resolved]
  - White blood cell count increased [Unknown]
